FAERS Safety Report 21205671 (Version 1)
Quarter: 2022Q3

REPORT INFORMATION
  Report Type: Spontaneous
  Country: US (occurrence: US)
  Receive Date: 20220812
  Receipt Date: 20220812
  Transmission Date: 20221027
  Serious: Yes (Other)
  Sender: FDA-Public Use
  Company Number: US-Vifor (International) Inc.-VIT-2022-05564

PATIENT
  Age: 61 Year
  Sex: Female
  Weight: 103.5 kg

DRUGS (2)
  1. MIRCERA [Suspect]
     Active Substance: METHOXY POLYETHYLENE GLYCOL-EPOETIN BETA
     Indication: Nephrogenic anaemia
     Dosage: TOTAL OF 17 DOSES. HIGHEST DOSE WAS 75 MCG
     Route: 042
     Dates: start: 20190814, end: 20210519
  2. MIRCERA [Suspect]
     Active Substance: METHOXY POLYETHYLENE GLYCOL-EPOETIN BETA
     Dosage: REPORTED AS 18TH DOSE
     Route: 042
     Dates: start: 20220711, end: 20220711

REACTIONS (3)
  - Drug hypersensitivity [Recovered/Resolved]
  - Near death experience [Recovered/Resolved]
  - Dyspnoea [Recovered/Resolved]

NARRATIVE: CASE EVENT DATE: 20220711
